FAERS Safety Report 17978990 (Version 1)
Quarter: 2020Q3

REPORT INFORMATION
  Report Type: Spontaneous
  Country: US (occurrence: US)
  Receive Date: 20200703
  Receipt Date: 20200703
  Transmission Date: 20201103
  Serious: Yes (Other)
  Sender: FDA-Public Use
  Company Number: US-ASTRAZENECA-2019SE10882

PATIENT
  Age: 59 Year
  Sex: Female
  Weight: 84.4 kg

DRUGS (26)
  1. DEXILANT [Suspect]
     Active Substance: DEXLANSOPRAZOLE
     Indication: GASTROOESOPHAGEAL REFLUX DISEASE
     Route: 065
     Dates: start: 2015, end: 2019
  2. AMLODIPINE [Concomitant]
     Active Substance: AMLODIPINE BESYLATE
     Indication: CHEST PAIN
     Dates: start: 2015, end: 2019
  3. VITAMIN D [Concomitant]
     Active Substance: VITAMIN D NOS
  4. NEXIUM [Suspect]
     Active Substance: ESOMEPRAZOLE MAGNESIUM
     Indication: GASTROOESOPHAGEAL REFLUX DISEASE
     Route: 048
     Dates: start: 2009, end: 2015
  5. AMLODIPINE [Concomitant]
     Active Substance: AMLODIPINE BESYLATE
     Indication: HYPERTENSION
     Dates: start: 2015, end: 2019
  6. RANITIDINE. [Concomitant]
     Active Substance: RANITIDINE
  7. QUETIAPINE. [Concomitant]
     Active Substance: QUETIAPINE
  8. GABAPENTIN. [Concomitant]
     Active Substance: GABAPENTIN
     Indication: ANTICONVULSANT DRUG LEVEL BELOW THERAPEUTIC
     Dates: start: 2015, end: 2016
  9. AMOXICILLIN. [Concomitant]
     Active Substance: AMOXICILLIN
     Indication: ANTIBIOTIC THERAPY
     Dates: start: 2016
  10. ZANTAC [Concomitant]
     Active Substance: RANITIDINE HYDROCHLORIDE
     Dosage: UNSURE?2009
  11. VALSARTAN. [Concomitant]
     Active Substance: VALSARTAN
  12. DEXILANT [Suspect]
     Active Substance: DEXLANSOPRAZOLE
     Indication: GASTROOESOPHAGEAL REFLUX DISEASE
     Route: 065
  13. OXYCODONE [Concomitant]
     Active Substance: OXYCODONE
  14. AMLODIPINE [Concomitant]
     Active Substance: AMLODIPINE BESYLATE
  15. IBUPROFEN. [Concomitant]
     Active Substance: IBUPROFEN
  16. NORVASC [Concomitant]
     Active Substance: AMLODIPINE BESYLATE
  17. PEPTO?BISMOL [Concomitant]
     Active Substance: BISMUTH SUBSALICYLATE
  18. GABAPENTIN. [Concomitant]
     Active Substance: GABAPENTIN
     Indication: NEURALGIA
     Dates: start: 2015, end: 2016
  19. MAALOX ANTACID [Concomitant]
     Active Substance: ALUMINUM HYDROXIDE\DIMETHICONE\MAGNESIUM HYDROXIDE
  20. FLUTICASONE. [Concomitant]
     Active Substance: FLUTICASONE
  21. TUMS [Concomitant]
     Active Substance: CALCIUM CARBONATE
  22. GABAPENTIN. [Concomitant]
     Active Substance: GABAPENTIN
  23. AMOXICILLIN. [Concomitant]
     Active Substance: AMOXICILLIN
  24. VALSARTAN. [Concomitant]
     Active Substance: VALSARTAN
  25. OXYCODONE [Concomitant]
     Active Substance: OXYCODONE
     Indication: PAIN
     Dates: start: 2015, end: 2019
  26. LINZESS [Concomitant]
     Active Substance: LINACLOTIDE

REACTIONS (3)
  - Chronic kidney disease [Not Recovered/Not Resolved]
  - Gastrooesophageal reflux disease [Unknown]
  - Abdominal pain upper [Unknown]

NARRATIVE: CASE EVENT DATE: 2018
